FAERS Safety Report 14975034 (Version 1)
Quarter: 2018Q2

REPORT INFORMATION
  Report Type: Spontaneous
  Country: FR (occurrence: FR)
  Receive Date: 20180605
  Receipt Date: 20180605
  Transmission Date: 20180711
  Serious: Yes (Hospitalization, Other)
  Sender: FDA-Public Use
  Company Number: FR-PFM-2018-06250

PATIENT

DRUGS (2)
  1. DAFALGAN CODEINE [Suspect]
     Active Substance: ACETAMINOPHEN\CODEINE PHOSPHATE
     Indication: SUICIDE ATTEMPT
     Dosage: 10G OF PARACETAMOL AND 600MG OF CODEINE
     Route: 048
     Dates: start: 20180304, end: 20180304
  2. PROPRANOLOL [Suspect]
     Active Substance: PROPRANOLOL HYDROCHLORIDE
     Indication: SUICIDE ATTEMPT
     Dosage: 1480 MG
     Route: 048
     Dates: start: 20180304, end: 20180304

REACTIONS (2)
  - Intentional overdose [Unknown]
  - Bradycardia [Recovered/Resolved]

NARRATIVE: CASE EVENT DATE: 20180304
